FAERS Safety Report 5282043-1 (Version None)
Quarter: 2007Q1

REPORT INFORMATION
  Report Type: 
  Country: None (occurrence: None)
  Receive Date: 20070330
  Receipt Date: 20070216
  Transmission Date: 20070707
  Serious: Yes (Death, Hospitalization)
  Sender: FDA-Public Use
  Company Number: CM-MERCK-0701USA03898

PATIENT
  Age: 63 Year
  Sex: Female

DRUGS (2)
  1. STROMECTOL [Suspect]
     Route: 048
     Dates: start: 20070112
  2. MEBENDAZOLE [Concomitant]
     Route: 065

REACTIONS (5)
  - ASTHENIA [None]
  - COMA [None]
  - DEATH [None]
  - PARAESTHESIA [None]
  - TACHYCARDIA [None]
